FAERS Safety Report 15106283 (Version 1)
Quarter: 2018Q3

REPORT INFORMATION
  Report Type: Spontaneous
  Country: US (occurrence: US)
  Receive Date: 20180704
  Receipt Date: 20180704
  Transmission Date: 20181010
  Serious: Yes (Other)
  Sender: FDA-Public Use
  Company Number: US-ROCHE-2117727

PATIENT
  Age: 81 Year
  Sex: Female

DRUGS (1)
  1. ESBRIET [Suspect]
     Active Substance: PIRFENIDONE
     Indication: IDIOPATHIC PULMONARY FIBROSIS
     Dosage: STILL USING
     Route: 048
     Dates: start: 20160520

REACTIONS (2)
  - Hepatic enzyme increased [Unknown]
  - Abdominal infection [Unknown]

NARRATIVE: CASE EVENT DATE: 20180412
